FAERS Safety Report 10463672 (Version 4)
Quarter: 2014Q4

REPORT INFORMATION
  Report Type: Report from Study
  Country: US (occurrence: US)
  Receive Date: 20140919
  Receipt Date: 20141030
  Transmission Date: 20150528
  Serious: Yes (Hospitalization)
  Sender: FDA-Public Use
  Company Number: US-ROCHE-1463793

PATIENT
  Age: 51 Year
  Sex: Male
  Weight: 83.22 kg

DRUGS (10)
  1. SANDOSTATIN LAR DEPOT [Suspect]
     Active Substance: OCTREOTIDE ACETATE
     Indication: NEUROENDOCRINE CARCINOMA
     Dosage: CYCLE/COURSE NUMBER: 61?DATE OF MOST RECENT DOSE PRIOR TO ABDOMINAL PAIN: 09/SEP/2014
     Route: 030
     Dates: start: 20140124
  2. MS CONTIN [Concomitant]
     Active Substance: MORPHINE SULFATE
     Indication: PAIN
     Route: 065
     Dates: start: 20100101
  3. NOVOLIN R [Concomitant]
     Active Substance: INSULIN HUMAN
     Indication: DIABETES MELLITUS
     Route: 058
     Dates: start: 20050101
  4. NEURONTIN (UNITED STATES) [Concomitant]
     Indication: NEUROPATHY PERIPHERAL
     Route: 048
     Dates: start: 20120424
  5. BEVACIZUMAB [Suspect]
     Active Substance: BEVACIZUMAB
     Indication: NEUROENDOCRINE CARCINOMA
     Dosage: CYCLE/COURSE NUMBER: 61?DATE OF MOST RECENT DOSE PRIOR TO ABDOMINAL PAIN: 26/AUG/2014
     Route: 042
     Dates: start: 20110124
  6. PERTUZUMAB [Suspect]
     Active Substance: PERTUZUMAB
     Indication: NEUROENDOCRINE CARCINOMA
     Dosage: CYCLE/COURSE NUMBER: 61?DATE OF MOST RECENT DOSE PRIOR TO ABDOMINAL PAIN: 26/AUG/2014
     Route: 042
     Dates: start: 20110124
  7. SYNTHROID [Concomitant]
     Active Substance: LEVOTHYROXINE SODIUM
     Indication: HYPOTHYROIDISM
     Route: 048
     Dates: start: 20120101
  8. NORVASC [Concomitant]
     Active Substance: AMLODIPINE BESYLATE
     Indication: HYPERTENSION
     Route: 065
     Dates: start: 20120502
  9. PRILOSEC [Concomitant]
     Active Substance: OMEPRAZOLE MAGNESIUM
     Indication: GASTROOESOPHAGEAL REFLUX DISEASE
     Route: 065
     Dates: start: 20070101
  10. MSIR [Concomitant]
     Active Substance: MORPHINE SULFATE
     Indication: PAIN
     Route: 065
     Dates: start: 20100101

REACTIONS (1)
  - Gastroenteritis viral [Recovered/Resolved]

NARRATIVE: CASE EVENT DATE: 20140916
